FAERS Safety Report 9807598 (Version 1)
Quarter: 2014Q1

REPORT INFORMATION
  Report Type: Spontaneous
  Country: US (occurrence: US)
  Receive Date: 20140110
  Receipt Date: 20140110
  Transmission Date: 20141002
  Serious: No
  Sender: FDA-Public Use
  Company Number: US-SANOFI-AVENTIS-2013SA049213

PATIENT
  Age: 65 Year
  Sex: Female

DRUGS (12)
  1. PLAVIX [Suspect]
     Route: 048
  2. NIASPAN [Suspect]
     Indication: LOW DENSITY LIPOPROTEIN INCREASED
  3. VITAMIN D [Concomitant]
  4. CALCIUM [Concomitant]
  5. METFORMIN [Concomitant]
     Dosage: DOSE: IN AM AND IN PM
  6. AMLODIPINE [Concomitant]
     Dosage: IN THE MORNING
  7. ATENOLOL [Concomitant]
     Dosage: FERQUENCY: IN THE MORNING
  8. OMEPRAZOLE [Concomitant]
     Dosage: FREQUENCY- IN THE MORNING
  9. LIPITOR [Concomitant]
     Dosage: FREQUENCY- AT BEDTIME
  10. ACETYLSALICYLIC ACID [Concomitant]
     Dosage: FREQUENCY- AT BEDTIME
  11. FOLIC ACID [Concomitant]
     Dosage: FREQUENCY- AT BEDTIME
  12. MULTIVITAMINS [Concomitant]
     Dosage: FREQUENCY- AT BEDTIME

REACTIONS (3)
  - Contusion [Recovered/Resolved]
  - Flushing [Not Recovered/Not Resolved]
  - Feeling hot [Unknown]
